FAERS Safety Report 16480462 (Version 2)
Quarter: 2019Q3

REPORT INFORMATION
  Report Type: Spontaneous
  Country: US (occurrence: US)
  Receive Date: 20190626
  Receipt Date: 20190807
  Transmission Date: 20191004
  Serious: Yes (Hospitalization, Other)
  Sender: FDA-Public Use
  Company Number: US-GLAXOSMITHKLINE-US2019AMR113791

PATIENT
  Age: 70 Year
  Sex: Female

DRUGS (2)
  1. FLOVENT HFA [Suspect]
     Active Substance: FLUTICASONE PROPIONATE
     Indication: PRODUCT USED FOR UNKNOWN INDICATION
     Dosage: UNK
     Route: 065
     Dates: start: 2004
  2. VENTOLIN HFA [Suspect]
     Active Substance: ALBUTEROL SULFATE
     Indication: PRODUCT USED FOR UNKNOWN INDICATION
     Dosage: 90 MCG/SPRAY
     Route: 055
     Dates: start: 1999

REACTIONS (9)
  - Cholecystectomy [Unknown]
  - Intestinal operation [Unknown]
  - Surgery [Unknown]
  - Large intestinal haemorrhage [Unknown]
  - Angiopathy [Unknown]
  - Parathyroidectomy [Unknown]
  - Intestinal perforation [Unknown]
  - Physiotherapy [Unknown]
  - Blood calcium increased [Unknown]

NARRATIVE: CASE EVENT DATE: 201805
